FAERS Safety Report 6461821-7 (Version None)
Quarter: 2009Q4

REPORT INFORMATION
  Report Type: 
  Country: None (occurrence: None)
  Receive Date: 20091123
  Receipt Date: 20091110
  Transmission Date: 20100525
  Serious: Yes (Other)
  Sender: FDA-Public Use
  Company Number: 230532M09USA

PATIENT
  Age: 40 Year
  Sex: Female

DRUGS (2)
  1. REBIF [Suspect]
     Indication: MULTIPLE SCLEROSIS
     Dates: start: 20070314
  2. BIRTH CONTROL PILLS (ORAL CONTRACEPTIVE NOS) [Suspect]
     Indication: MENSTRUATION IRREGULAR

REACTIONS (1)
  - HEPATIC ADENOMA [None]
